FAERS Safety Report 11437128 (Version 1)
Quarter: 2015Q3

REPORT INFORMATION
  Report Type: Spontaneous
  Country: US (occurrence: US)
  Receive Date: 20150821
  Receipt Date: 20150821
  Transmission Date: 20151125
  Serious: No
  Sender: FDA-Public Use
  Company Number: US-ELI_LILLY_AND_COMPANY-US200703000040

PATIENT
  Sex: Male
  Weight: 111.11 kg

DRUGS (15)
  1. CYMBALTA [Suspect]
     Active Substance: DULOXETINE HYDROCHLORIDE
     Indication: NEUROPATHY PERIPHERAL
     Dosage: UNK MG, UNK
     Dates: start: 200604, end: 20070122
  2. LYRICA [Concomitant]
     Active Substance: PREGABALIN
     Dosage: 150 MEQ, 2/D
     Dates: start: 20060426, end: 20060515
  3. GABAPENTIN. [Concomitant]
     Active Substance: GABAPENTIN
     Indication: NEURALGIA
     Dosage: 900 MG, 3/D
     Dates: start: 20060905, end: 20070102
  4. ASA [Concomitant]
     Active Substance: ASPIRIN
  5. LIPITOR [Concomitant]
     Active Substance: ATORVASTATIN CALCIUM
  6. LYRICA [Concomitant]
     Active Substance: PREGABALIN
     Dosage: 150 MG, 3/D
     Dates: start: 20060516, end: 20060718
  7. LYRICA [Concomitant]
     Active Substance: PREGABALIN
     Indication: NEURALGIA
     Dosage: 200 MG, 3/D
     Dates: start: 20060719, end: 20060905
  8. GABAPENTIN. [Concomitant]
     Active Substance: GABAPENTIN
     Dosage: 7200 MG, DAILY (1/D)
     Dates: start: 20070123
  9. CELEBREX [Concomitant]
     Active Substance: CELECOXIB
  10. ZOCOR [Concomitant]
     Active Substance: SIMVASTATIN
  11. GABAPENTIN. [Concomitant]
     Active Substance: GABAPENTIN
     Dosage: 1000 MG, 4/D
     Dates: start: 20070101, end: 20070122
  12. IMDUR [Concomitant]
     Active Substance: ISOSORBIDE MONONITRATE
  13. MINOCYCLINE [Concomitant]
     Active Substance: MINOCYCLINE\MINOCYCLINE HYDROCHLORIDE
  14. AVAPRO [Concomitant]
     Active Substance: IRBESARTAN
  15. CYMBALTA [Interacting]
     Active Substance: DULOXETINE HYDROCHLORIDE
     Dosage: 120 MG, 3/D
     Dates: start: 20070123

REACTIONS (3)
  - Drug interaction [Not Recovered/Not Resolved]
  - Rash [Not Recovered/Not Resolved]
  - Overdose [Not Recovered/Not Resolved]
